FAERS Safety Report 11327368 (Version 4)
Quarter: 2015Q4

REPORT INFORMATION
  Report Type: Spontaneous
  Country: US (occurrence: US)
  Receive Date: 20150731
  Receipt Date: 20151120
  Transmission Date: 20160304
  Serious: No
  Sender: FDA-Public Use
  Company Number: US-PFIZER INC-2015255094

PATIENT
  Age: 51 Year
  Sex: Female
  Weight: 85 kg

DRUGS (21)
  1. LYRICA [Suspect]
     Active Substance: PREGABALIN
     Indication: DIABETIC NEUROPATHY
     Dosage: 150 MG, 2X/DAY
     Route: 048
  2. METFORMIN [Concomitant]
     Active Substance: METFORMIN HYDROCHLORIDE
     Indication: TYPE 2 DIABETES MELLITUS
     Dosage: 1000 MG, 2X/DAY
     Route: 048
  3. LEVEMIR [Concomitant]
     Active Substance: INSULIN DETEMIR
     Indication: TYPE 2 DIABETES MELLITUS
     Dosage: 48 IU, 1X/DAY AT BEDTIME
     Route: 058
     Dates: start: 20150513
  4. ROPINIROLE HCL [Concomitant]
     Active Substance: ROPINIROLE HYDROCHLORIDE
     Indication: RESTLESS LEGS SYNDROME
     Dosage: 1 MG, ONE BY MOUTH THREE HOURS BEFORE BEDTIME
     Route: 048
     Dates: start: 2013
  5. LISINOPRIL AND HYDROCHLOROTHIAZIDE [Concomitant]
     Active Substance: HYDROCHLOROTHIAZIDE\LISINOPRIL
     Indication: HYPERTENSION
     Dosage: 1 DF, 1X/DAY (LISINOPRIL-20 MG/HCTZ-12.5 MG)
     Route: 048
  6. BUPROPION. [Concomitant]
     Active Substance: BUPROPION
     Indication: DEPRESSION
     Dosage: 150 MG, 2X/DAY
     Route: 048
  7. FLEXERIL [Concomitant]
     Active Substance: CYCLOBENZAPRINE HYDROCHLORIDE
     Indication: RESTLESS LEGS SYNDROME
     Dosage: 10 MG, 1X/DAY
     Route: 048
  8. HYDROXYZINE HCL [Concomitant]
     Active Substance: HYDROXYZINE HYDROCHLORIDE
     Indication: DYSPNOEA
  9. ALBUTEROL. [Concomitant]
     Active Substance: ALBUTEROL
     Indication: ASTHMA
     Dosage: UNK, 3X/DAY (AS NEEDED)
  10. CYCLOBENZAPRINE [Concomitant]
     Active Substance: CYCLOBENZAPRINE
     Indication: RESTLESS LEGS SYNDROME
     Dosage: 10 MG, ONE BY MOUTH AT BEDTIME
     Route: 048
  11. HYDROXYZINE HCL [Concomitant]
     Active Substance: HYDROXYZINE HYDROCHLORIDE
     Indication: HEART RATE INCREASED
     Dosage: 25 MG, 4X/DAY
     Route: 048
  12. ZOLPIDEM TARTRATE. [Concomitant]
     Active Substance: ZOLPIDEM TARTRATE
     Indication: SLEEP APNOEA SYNDROME
     Dosage: 10 MG, 1X/DAY (AT BEDTIME)
     Route: 048
  13. BUSPIRONE [Concomitant]
     Active Substance: BUSPIRONE HYDROCHLORIDE
     Indication: STRESS
     Dosage: 10 MG, 3X/DAY
     Route: 048
  14. SUMATRIPTAN SUCCINATE. [Concomitant]
     Active Substance: SUMATRIPTAN SUCCINATE
     Indication: MIGRAINE
     Dosage: 100 MG, UNK (ONE AT ONSET OF MIGRAINE HEADACHE; MAY REPEAT IN FOUR HOURS)
  15. SUCRALFATE. [Concomitant]
     Active Substance: SUCRALFATE
     Indication: ABDOMINAL DISCOMFORT
     Dosage: 1 G, 4X/DAY
     Route: 048
  16. PROVENTIL HFA [Concomitant]
     Active Substance: ALBUTEROL SULFATE
     Indication: ASTHMA
     Dosage: UNK, AS NEEDED (INHALE TWO PUFFS BY MOUTH EVERY FOUR HOURS AS NEEDED )
     Route: 048
  17. DICYCLOMINE [Concomitant]
     Active Substance: DICYCLOMINE HYDROCHLORIDE
     Indication: MUSCLE SPASMS
     Dosage: 10 MG, AS NEEDED (ONE BY MOUTH EVERY SIX HOURS AS NEEDED)
     Route: 048
  18. DEXILANT [Concomitant]
     Active Substance: DEXLANSOPRAZOLE
     Indication: GASTROOESOPHAGEAL REFLUX DISEASE
     Dosage: 60 MG, 1X/DAY
     Route: 048
     Dates: start: 20140306
  19. LORATADINE. [Concomitant]
     Active Substance: LORATADINE
     Indication: HYPERSENSITIVITY
     Dosage: 10 MG, 1X/DAY
  20. ESTRADIOL. [Concomitant]
     Active Substance: ESTRADIOL
     Indication: HOT FLUSH
     Dosage: 1 MG, 1X/DAY
     Route: 048
  21. TOBACCO [Concomitant]
     Active Substance: TOBACCO LEAF
     Dosage: UNK

REACTIONS (12)
  - Neuropathy peripheral [Not Recovered/Not Resolved]
  - Condition aggravated [Not Recovered/Not Resolved]
  - Joint injury [Not Recovered/Not Resolved]
  - Muscle spasms [Not Recovered/Not Resolved]
  - Condition aggravated [Not Recovered/Not Resolved]
  - Peripheral swelling [Not Recovered/Not Resolved]
  - Fall [Not Recovered/Not Resolved]
  - Pain in extremity [Not Recovered/Not Resolved]
  - Drug ineffective [Not Recovered/Not Resolved]
  - Swelling [Not Recovered/Not Resolved]
  - Hearing impaired [Recovering/Resolving]
  - Restless legs syndrome [Not Recovered/Not Resolved]

NARRATIVE: CASE EVENT DATE: 2013
